FAERS Safety Report 18770600 (Version 3)
Quarter: 2021Q1

REPORT INFORMATION
  Report Type: Spontaneous
  Country: US (occurrence: US)
  Receive Date: 20210121
  Receipt Date: 20210203
  Transmission Date: 20210419
  Serious: Yes (Other)
  Sender: FDA-Public Use
  Company Number: US-PFIZER INC-2021032802

PATIENT
  Age: 50 Year
  Sex: Male

DRUGS (2)
  1. LIPOSOMAL DOXORUBICIN HCL [Suspect]
     Active Substance: DOXORUBICIN HYDROCHLORIDE
     Indication: SOFT TISSUE SARCOMA
  2. LIPOSOMAL DOXORUBICIN HCL [Suspect]
     Active Substance: DOXORUBICIN HYDROCHLORIDE
     Indication: LIPOSARCOMA
     Dosage: 45 MG/M2, MONTHLY, 1721 MG/M2 76 MONTHS AFTER FIRST STARTING PLD

REACTIONS (4)
  - Thrombotic microangiopathy [Unknown]
  - Toxicity to various agents [Unknown]
  - Renal failure [Unknown]
  - Nephropathy toxic [Unknown]
